FAERS Safety Report 9245643 (Version 1)
Quarter: 2013Q2

REPORT INFORMATION
  Report Type: Spontaneous
  Country: US (occurrence: US)
  Receive Date: 20130422
  Receipt Date: 20130422
  Transmission Date: 20140414
  Serious: Yes (Other)
  Sender: FDA-Public Use
  Company Number: US-ASTELLAS-2013US003714

PATIENT
  Age: 82 Year
  Sex: Male
  Weight: 63 kg

DRUGS (13)
  1. LEXISCAN [Suspect]
     Indication: SCAN MYOCARDIAL PERFUSION
     Dosage: UNK
     Route: 042
     Dates: start: 20120319, end: 20120319
  2. ALL OTHER THERAPEUTIC PRODUCTS [Concomitant]
     Indication: PROSTATE CANCER METASTATIC
     Dosage: UNK
     Route: 048
     Dates: start: 20120118, end: 20120318
  3. MULTIVITAMINS, PLAIN [Concomitant]
     Indication: MEDICAL DIET
     Dosage: 1 DF, UID/QD
     Route: 065
     Dates: start: 20091215
  4. ASPIRIN [Concomitant]
     Indication: PROPHYLAXIS
     Dosage: 325 MG, UNKNOWN/D
     Route: 048
     Dates: start: 20090806
  5. CALCIUM + VITAMIN D [Concomitant]
     Indication: MEDICAL DIET
     Dosage: 2 DF, UID/QD
     Route: 048
     Dates: start: 20081204
  6. IRON [Concomitant]
     Indication: ANAEMIA
     Dosage: 1 DF, UID/QD
     Route: 048
     Dates: start: 20091215, end: 20120301
  7. MIRALAX                            /00754501/ [Concomitant]
     Indication: CONSTIPATION
     Dosage: 1 TBSP, UNKNOWN/D
     Route: 048
     Dates: start: 20110516
  8. PLAVIX [Concomitant]
     Indication: STENT PLACEMENT
     Dosage: 75 MG, UID/QD
     Route: 048
     Dates: start: 20091215
  9. SERTRALINE [Concomitant]
     Indication: DEPRESSION
     Dosage: 50 MG, UID/QD
     Route: 048
     Dates: start: 20101229
  10. SIMVASTATIN [Concomitant]
     Indication: HYPERLIPIDAEMIA
     Dosage: 40 MG, UID/QD
     Route: 048
     Dates: start: 20110416
  11. ZYPREXA [Concomitant]
     Indication: AGITATION
     Dosage: 5 MG, UNKNOWN/D
     Route: 048
     Dates: start: 20120301
  12. ZYPREXA [Concomitant]
     Dosage: 10 MG, UNKNOWN/D
     Route: 048
     Dates: start: 20110516, end: 20120229
  13. XGEVA [Concomitant]
     Indication: OSTEOPOROSIS
     Dosage: 120 MG, UNKNOWN/D
     Route: 058
     Dates: start: 20111227

REACTIONS (3)
  - Chest discomfort [Recovered/Resolved]
  - Headache [Recovered/Resolved]
  - Nausea [Recovered/Resolved]
